FAERS Safety Report 22531364 (Version 1)
Quarter: 2023Q2

REPORT INFORMATION
  Report Type: Spontaneous
  Country: US (occurrence: US)
  Receive Date: 20230607
  Receipt Date: 20230607
  Transmission Date: 20230722
  Serious: No
  Sender: FDA-Public Use
  Company Number: US-TAKEDA-2023TUS054433

PATIENT
  Sex: Male

DRUGS (1)
  1. CARBAMAZEPINE [Suspect]
     Active Substance: CARBAMAZEPINE
     Indication: Product used for unknown indication
     Dosage: 300 MILLIGRAM, BID
     Route: 065

REACTIONS (6)
  - Trigeminal neuralgia [Unknown]
  - Hypoaesthesia [Unknown]
  - Toothache [Unknown]
  - Neuralgia [Unknown]
  - Pain [Unknown]
  - Drug ineffective [Unknown]
